FAERS Safety Report 6299245-8 (Version None)
Quarter: 2009Q3

REPORT INFORMATION
  Report Type: 
  Country: None (occurrence: None)
  Receive Date: 20090806
  Receipt Date: 20090727
  Transmission Date: 20100115
  Serious: Yes (Other)
  Sender: FDA-Public Use
  Company Number: ES-JNJFOC-20090709485

PATIENT
  Age: 56 Year
  Sex: Male

DRUGS (4)
  1. REMICADE [Suspect]
     Indication: SPONDYLOARTHROPATHY
     Route: 042
  2. NSAIDS [Concomitant]
  3. FOLIC ACID [Concomitant]
  4. OMEPRAZOLE [Concomitant]

REACTIONS (1)
  - DISSEMINATED TUBERCULOSIS [None]
